FAERS Safety Report 8018255-3 (Version None)
Quarter: 2012Q1

REPORT INFORMATION
  Report Type: 
  Country: None (occurrence: None)
  Receive Date: 20120103
  Receipt Date: 20111227
  Transmission Date: 20120608
  Serious: Yes (Hospitalization)
  Sender: FDA-Public Use
  Company Number: ES-B.I. PHARMACEUTICALS,INC./RIDGEFIELD-2011-ES-00294ES

PATIENT
  Sex: Female

DRUGS (2)
  1. PRADAXA [Suspect]
     Indication: ATRIAL FIBRILLATION
     Dosage: 220 MG
     Route: 048
     Dates: start: 20110930, end: 20111011
  2. RAMIPRIL [Concomitant]
     Indication: HYPERTENSION
     Route: 048

REACTIONS (6)
  - EPISTAXIS [None]
  - FAECES DISCOLOURED [None]
  - ASTHENIA [None]
  - MALAISE [None]
  - HYPOCHROMIC ANAEMIA [None]
  - MICROCYTIC ANAEMIA [None]
